FAERS Safety Report 5604282-X (Version None)
Quarter: 2008Q1

REPORT INFORMATION
  Report Type: 
  Country: None (occurrence: None)
  Receive Date: 20080128
  Receipt Date: 20080121
  Transmission Date: 20080703
  Serious: Yes (Other)
  Sender: FDA-Public Use
  Company Number: ZA-AVENTIS-200810779GDDC

PATIENT
  Age: 39 Year
  Sex: Female
  Weight: 76 kg

DRUGS (6)
  1. LANTUS [Suspect]
     Route: 058
  2. APIDRA [Suspect]
     Dosage: DOSE: 10-20
     Route: 058
  3. ELTROXIN [Concomitant]
     Dosage: DOSE QUANTITY: 2
     Route: 048
  4. ADCO-SIMVASTATIN [Concomitant]
     Route: 048
  5. NUZAK [Concomitant]
     Indication: DEPRESSION
     Dosage: DOSE QUANTITY: 2
  6. MYPRODOL [Concomitant]
     Indication: HEADACHE
     Route: 048

REACTIONS (2)
  - DIABETES MELLITUS INADEQUATE CONTROL [None]
  - WEIGHT INCREASED [None]
